FAERS Safety Report 24379823 (Version 1)
Quarter: 2024Q3

REPORT INFORMATION
  Report Type: Spontaneous
  Country: US (occurrence: US)
  Receive Date: 20240930
  Receipt Date: 20240930
  Transmission Date: 20241017
  Serious: No
  Sender: PFIZER
  Company Number: US-PFIZER INC-202400263188

PATIENT
  Age: 70 Year
  Sex: Male
  Weight: 102.06 kg

DRUGS (14)
  1. DOFETILIDE [Suspect]
     Active Substance: DOFETILIDE
     Indication: Cardiac disorder
     Dosage: 0.250 MG
     Dates: start: 20240916, end: 20240919
  2. DOFETILIDE [Suspect]
     Active Substance: DOFETILIDE
     Dosage: 0.125 MG, 2X/DAY
     Route: 048
     Dates: start: 20240920
  3. ASPIRIN [Concomitant]
     Active Substance: ASPIRIN
     Indication: Blood disorder
     Dosage: 81 MG, 1X/DAY
     Dates: start: 202310
  4. ASPIRIN [Concomitant]
     Active Substance: ASPIRIN
     Indication: Cardiac disorder
  5. BRILINTA [Concomitant]
     Active Substance: TICAGRELOR
     Indication: Anticoagulant therapy
     Dosage: 90 MG, 2X/DAY
     Dates: start: 202310
  6. CARVEDILOL [Concomitant]
     Active Substance: CARVEDILOL
     Dosage: IT IS LITTLE WHITE PILL THAT THEY SAY TAKE TWICE A DAY
     Dates: start: 202310
  7. ELIQUIS [Concomitant]
     Active Substance: APIXABAN
     Indication: Anticoagulant therapy
     Dosage: 5 MG, 2X/DAY
     Dates: start: 202310
  8. FUROSEMIDE [Concomitant]
     Active Substance: FUROSEMIDE
     Indication: Pleural effusion
     Dosage: 40 MG, 2X/DAY
     Dates: start: 202310
  9. FUROSEMIDE [Concomitant]
     Active Substance: FUROSEMIDE
     Indication: Pulmonary oedema
  10. NEXIUM I.V. [Concomitant]
     Active Substance: ESOMEPRAZOLE SODIUM
     Indication: Gastrooesophageal reflux disease
     Dosage: IN THE MORNING; HAS BEEN TAKING FOR PROBABLY 20 PLUS YEARS
  11. ATORVASTATIN [Concomitant]
     Active Substance: ATORVASTATIN
     Dosage: 40 MG, 1X/DAY
  12. EZETIMIBE [Concomitant]
     Active Substance: EZETIMIBE
     Dosage: IN THE MORNING
  13. POTASSIUM [Concomitant]
     Active Substance: POTASSIUM
     Indication: Blood potassium decreased
     Dosage: STARTED TAKING MAYBE 3-4 MONTHS BACK AROUND JUNE OR JULY
     Dates: start: 2024
  14. ENTRESTO [Concomitant]
     Active Substance: SACUBITRIL\VALSARTAN
     Dosage: 49-51MG, 2X/DAY
     Dates: start: 202310

REACTIONS (2)
  - Drug ineffective [Unknown]
  - Product dispensing error [Unknown]
